FAERS Safety Report 6617688-7 (Version None)
Quarter: 2010Q1

REPORT INFORMATION
  Report Type: 
  Country: None (occurrence: None)
  Receive Date: 20100308
  Receipt Date: 20100222
  Transmission Date: 20100710
  Serious: Yes (Hospitalization, Other)
  Sender: FDA-Public Use
  Company Number: PHEH2008US04759

PATIENT
  Sex: Male
  Weight: 82.086 kg

DRUGS (14)
  1. ZOMETA [Suspect]
     Indication: HYPERCALCAEMIA
     Dosage: UNK
     Dates: start: 20050201
  2. ATENOLOL [Concomitant]
     Dosage: 100 MG, QD
  3. HYDROCHLOROTHIAZIDE [Concomitant]
     Dosage: 50 MG, QD
  4. BABY ASPIRIN [Concomitant]
  5. GLUCOSAMINE [Concomitant]
  6. RADIATION THERAPY [Concomitant]
  7. DEXAMETHASONE [Concomitant]
     Dosage: UNK
     Dates: start: 20050201
  8. THALIDOMIDE [Concomitant]
     Dates: start: 20050201
  9. MARIJUANA [Concomitant]
  10. OXYCODONE HCL [Concomitant]
  11. DIAZEPAM [Concomitant]
  12. SKELAXIN [Concomitant]
     Dosage: 800 MG / PRN
  13. DECADRON [Concomitant]
     Dosage: UNK
  14. CHANTIX [Concomitant]
     Dosage: MONTH PACK

REACTIONS (29)
  - ANAEMIA [None]
  - ANHEDONIA [None]
  - ANXIETY [None]
  - ARTHRALGIA [None]
  - BACK PAIN [None]
  - BONE EROSION [None]
  - BONE OPERATION [None]
  - CONFUSIONAL STATE [None]
  - DEAFNESS [None]
  - DEBRIDEMENT [None]
  - DIVERTICULUM [None]
  - DRY MOUTH [None]
  - DYSGEUSIA [None]
  - DYSPHAGIA [None]
  - HAEMATOCRIT ABNORMAL [None]
  - INJURY [None]
  - LUMBAR SPINAL STENOSIS [None]
  - ORAL CANDIDIASIS [None]
  - OSTEONECROSIS [None]
  - OSTEOPENIA [None]
  - PAIN [None]
  - POLYP [None]
  - RENAL FAILURE [None]
  - SKIN GRAFT [None]
  - SWELLING [None]
  - TONSIL CANCER [None]
  - TONSILLECTOMY [None]
  - TOOTH EXTRACTION [None]
  - WEIGHT DECREASED [None]
